FAERS Safety Report 5800260-6 (Version None)
Quarter: 2008Q3

REPORT INFORMATION
  Report Type: 
  Country: None (occurrence: None)
  Receive Date: 20080703
  Receipt Date: 20080627
  Transmission Date: 20090109
  Serious: Yes (Other)
  Sender: FDA-Public Use
  Company Number: PHHY2008AU12214

PATIENT
  Sex: Female

DRUGS (2)
  1. TEGRETOL [Suspect]
     Dosage: 400-800MG/DAY
     Route: 048
     Dates: end: 20080627
  2. ZYPREXA [Concomitant]

REACTIONS (2)
  - BUNDLE BRANCH BLOCK RIGHT [None]
  - EXTRASYSTOLES [None]
